FAERS Safety Report 6570416-6 (Version None)
Quarter: 2010Q1

REPORT INFORMATION
  Report Type: 
  Country: None (occurrence: None)
  Receive Date: 20100204
  Receipt Date: 20090515
  Transmission Date: 20100710
  Serious: No
  Sender: FDA-Public Use
  Company Number: A0773842A

PATIENT
  Age: 32 Year
  Sex: Female

DRUGS (18)
  1. ARIXTRA [Suspect]
     Indication: PULMONARY EMBOLISM
     Dosage: 7.5MG PER DAY
     Route: 058
  2. CIMETIDINE [Concomitant]
  3. XIFAXAN [Concomitant]
  4. PREDNISONE [Concomitant]
  5. MORPHINE SULFATE [Concomitant]
  6. LOPERAMIDE [Concomitant]
  7. SYNTHROID [Concomitant]
  8. PROMETHAZINE [Concomitant]
  9. OMEPRAZOLE [Concomitant]
  10. FLORINEF [Concomitant]
  11. GABAPENTIN [Concomitant]
  12. METHOCARBAMOL [Concomitant]
  13. CALCIUM + D [Concomitant]
  14. SOLU-CORTEF [Concomitant]
  15. ZOFRAN [Concomitant]
  16. COMBIVENT [Concomitant]
  17. ADVAIR DISKUS 100/50 [Concomitant]
  18. PROAIR HFA [Concomitant]

REACTIONS (2)
  - CONTUSION [None]
  - PRODUCT QUALITY ISSUE [None]
